FAERS Safety Report 9616096 (Version 1)
Quarter: 2013Q4

REPORT INFORMATION
  Report Type: Spontaneous
  Country: US (occurrence: None)
  Receive Date: 20131010
  Receipt Date: 20131010
  Transmission Date: 20140711
  Serious: Yes (Hospitalization)
  Sender: FDA-Public Use
  Company Number: None

PATIENT
  Sex: 0

DRUGS (2)
  1. PHENYTOIN [Suspect]
     Indication: CONVULSION
     Route: 048
     Dates: start: 20130518, end: 20130701
  2. PHENYTOIN [Suspect]
     Indication: UPPER RESPIRATORY TRACT INFECTION
     Route: 048
     Dates: start: 20130518, end: 20130701

REACTIONS (1)
  - Drug reaction with eosinophilia and systemic symptoms [None]
